APPROVED DRUG PRODUCT: CELEBREX
Active Ingredient: CELECOXIB
Strength: 200MG
Dosage Form/Route: CAPSULE;ORAL
Application: N020998 | Product #002 | TE Code: AB
Applicant: UPJOHN US 2 LLC
Approved: Dec 31, 1998 | RLD: Yes | RS: No | Type: RX